FAERS Safety Report 5293360-3 (Version None)
Quarter: 2007Q2

REPORT INFORMATION
  Report Type: 
  Country: None (occurrence: None)
  Receive Date: 20070411
  Receipt Date: 20070330
  Transmission Date: 20071010
  Serious: Yes (Death)
  Sender: FDA-Public Use
  Company Number: 2006UW24166

PATIENT
  Age: 27588 Day
  Sex: Male
  Weight: 63.6 kg

DRUGS (3)
  1. SEROQUEL [Suspect]
     Indication: SLEEP DISORDER
     Route: 048
  2. SEROQUEL [Suspect]
     Route: 048
     Dates: start: 20000418
  3. ZYPREXA [Suspect]
     Dosage: 5 MG + 2.5 MG
     Dates: start: 20001201, end: 20040301

REACTIONS (2)
  - DEATH [None]
  - HYPERGLYCAEMIA [None]
